FAERS Safety Report 14341387 (Version 1)
Quarter: 2018Q1

REPORT INFORMATION
  Report Type: Spontaneous
  Country: US (occurrence: US)
  Receive Date: 20180102
  Receipt Date: 20180102
  Transmission Date: 20180509
  Serious: No
  Sender: FDA-Public Use
  Company Number: US-TEVA-737797ACC

PATIENT
  Sex: Female

DRUGS (2)
  1. LOVASTATIN. [Suspect]
     Active Substance: LOVASTATIN
     Route: 065
  2. LIPITOR [Suspect]
     Active Substance: ATORVASTATIN CALCIUM
     Route: 065

REACTIONS (4)
  - Malaise [Unknown]
  - Gait disturbance [Unknown]
  - Arthralgia [Unknown]
  - Headache [Unknown]
